FAERS Safety Report 7483905-7 (Version None)
Quarter: 2011Q2

REPORT INFORMATION
  Report Type: 
  Country: None (occurrence: None)
  Receive Date: 20110517
  Receipt Date: 20110509
  Transmission Date: 20111010
  Serious: Yes (Death, Other)
  Sender: FDA-Public Use
  Company Number: NL-GENZYME-200821136GPV

PATIENT
  Age: 41 Year
  Sex: Male

DRUGS (49)
  1. CAMPATH [Suspect]
     Dosage: 30 MG, DAY 1, 5, 10
     Route: 058
  2. CAMPATH [Suspect]
     Dosage: 30 MG, DAY 1, 5, 10
     Route: 058
     Dates: end: 20061001
  3. CYCLOPHOSPHAMIDE [Suspect]
     Dosage: 750 MG/M2 DAY 1, CYCLE 2
     Route: 042
  4. DOXORUBICIN HCL [Suspect]
     Dosage: 50 MG/M2, DAY 1,CYCLE 4
     Route: 042
  5. VINCRISTINE [Suspect]
     Dosage: 1.4 MG/M2, ONCE, CYCLE 7
     Route: 042
  6. PREDNISONE [Suspect]
     Dosage: 100 MG, QD ON DAYS 1-5, CYCLE 4
     Route: 048
  7. CAMPATH [Suspect]
     Dosage: 30 MG, DAY 1, 5, 10
     Route: 058
     Dates: end: 20061001
  8. CAMPATH [Suspect]
     Dosage: 30 MG, DAY 1, 5, 10
     Route: 058
  9. CYCLOPHOSPHAMIDE [Suspect]
     Dosage: 750 MG/M2 DAY 1, CYCLE 5
     Route: 042
  10. CYCLOPHOSPHAMIDE [Suspect]
     Dosage: 750 MG/M2 DAY 1, CYCLE 8
     Route: 042
     Dates: end: 20061001
  11. DOXORUBICIN HCL [Suspect]
     Dosage: 50 MG/M2, DAY 1, CYCLE 6
     Route: 042
  12. PREDNISONE [Suspect]
     Dosage: 100 MG, QD ON DAYS 1-5, CYCLE 3
     Route: 048
  13. PREDNISONE [Suspect]
     Dosage: 100 MG, QD ON DAYS 1-5, CYCLE 7
     Route: 048
  14. PEGFILGRASTIM [Concomitant]
     Indication: PRODUCT USED FOR UNKNOWN INDICATION
     Dosage: 6 MG, QS
     Route: 058
  15. CAMPATH [Suspect]
     Dosage: 30 MG, DAY 1, 5, 10
     Route: 058
  16. CYCLOPHOSPHAMIDE [Suspect]
     Dosage: 750 MG/M2 DAY 1, CYCLE 3
     Route: 042
  17. DOXORUBICIN HCL [Suspect]
     Dosage: 50 MG/M2, DAY 1,CYCLE 5
     Route: 042
  18. VINCRISTINE [Suspect]
     Indication: PERIPHERAL T-CELL LYMPHOMA UNSPECIFIED
     Dosage: 1.4 MG/M2, ONCE CYCLE 1
     Route: 042
  19. VINCRISTINE [Suspect]
     Dosage: 1.4 MG/M2, ONCE, CYCLE 5
     Route: 042
  20. PREDNISONE [Suspect]
     Dosage: 100 MG, QD ON DAYS 1-5, CYCLE 8
     Route: 048
  21. CYCLOPHOSPHAMIDE [Suspect]
     Dosage: 750 MG/M2 DAY 1, CYCLE 7
     Route: 042
  22. VINCRISTINE [Suspect]
     Dosage: 1.4 MG/M2, ONCE, CYCLE 2
     Route: 042
  23. VINCRISTINE [Suspect]
     Dosage: 1.4 MG/M2, ONCE, CYCLE 4
     Route: 042
  24. VINCRISTINE [Suspect]
     Dosage: 1.4 MG/M2, ONCE, CYCLE 8
     Route: 042
     Dates: end: 20061001
  25. ANTIHISTAMINES [Concomitant]
     Indication: ANTIALLERGIC THERAPY
     Dosage: UNK MG, UNK
     Route: 065
  26. CAMPATH [Suspect]
     Dosage: 30 MG, DAY 1, 5, 10
     Route: 058
  27. DOXORUBICIN HCL [Suspect]
     Dosage: 50 MG/M2, DAY 1, CYCLE 8
     Route: 042
     Dates: end: 20061001
  28. COTRIM [Concomitant]
     Indication: INFECTION PROPHYLAXIS
     Dosage: 480 MG, BID, 3X/W
     Route: 065
  29. VALACICLOVIR [Concomitant]
     Indication: ANTIVIRAL PROPHYLAXIS
     Dosage: 500 MG, BID
     Route: 065
  30. FLUCONAZOLE [Concomitant]
     Indication: ANTIFUNGAL PROPHYLAXIS
     Dosage: QD, 100-150 MG
     Route: 065
  31. CAMPATH [Suspect]
     Dosage: 10 MG, DAY 5, CYCLE 1
     Route: 058
  32. DOXORUBICIN HCL [Suspect]
     Indication: PERIPHERAL T-CELL LYMPHOMA UNSPECIFIED
     Dosage: 50 MG/M2, DAY 1, CYCLE 1
     Route: 042
  33. DOXORUBICIN HCL [Suspect]
     Dosage: 50 MG/M2, DAY 1, CYCLE 2
     Route: 042
  34. DOXORUBICIN HCL [Suspect]
     Dosage: 50 MG/M2, DAY 1, CYCLE 3
     Route: 042
  35. PREDNISONE [Suspect]
     Indication: PERIPHERAL T-CELL LYMPHOMA UNSPECIFIED
     Dosage: 100 MG, QD ON DAYS 1-5, CYCLE 1
     Route: 048
  36. CAMPATH [Suspect]
     Indication: PERIPHERAL T-CELL LYMPHOMA UNSPECIFIED
     Dosage: 3 MG, DAY 1, CYCLE 1
     Route: 058
  37. CAMPATH [Suspect]
     Dosage: 30 MG, DAY 10, CYCLE 1
     Route: 058
  38. CAMPATH [Suspect]
     Dosage: 30 MG, DAY 1, 5, 10
     Route: 058
  39. VINCRISTINE [Suspect]
     Dosage: 1.4 MG/M2, ONCE, CYCLE 3
     Route: 042
  40. PREDNISONE [Suspect]
     Dosage: 100 MG, QD ON DAYS 1-5, CYCLE 6
     Route: 048
  41. ALLOPURINOL [Concomitant]
     Indication: PROPHYLAXIS
     Dosage: 300 MG, UNK
     Route: 065
  42. CYCLOPHOSPHAMIDE [Suspect]
     Indication: PERIPHERAL T-CELL LYMPHOMA UNSPECIFIED
     Dosage: 750 MG/M2 DAY 1, CYCLE 1
     Route: 042
  43. CYCLOPHOSPHAMIDE [Suspect]
     Dosage: 750 MG/M2 DAY 1, CYCLE 4
     Route: 042
  44. CYCLOPHOSPHAMIDE [Suspect]
     Dosage: 750 MG/M2 DAY 1, CYCLE 6
     Route: 042
  45. DOXORUBICIN HCL [Suspect]
     Dosage: 50 MG/M2,  DAY 1,CYCLE 7
     Route: 042
  46. VINCRISTINE [Suspect]
     Dosage: 1.4 MG/M2, ONCE, CYCLE 6
     Route: 042
  47. PREDNISONE [Suspect]
     Dosage: 100 MG, QD ON DAYS 1-5, CYCLE 2
     Route: 048
  48. PREDNISONE [Suspect]
     Dosage: 100 MG, QD ON DAYS 1-5, CYCLE 5
     Route: 048
  49. ACETAMINOPHEN [Concomitant]
     Indication: PREMEDICATION
     Dosage: 1000 MG, UNK
     Route: 065

REACTIONS (6)
  - EPSTEIN-BARR VIRUS INFECTION [None]
  - FEBRILE NEUTROPENIA [None]
  - T-CELL LYMPHOMA [None]
  - CYTOMEGALOVIRUS INFECTION [None]
  - HISTIOCYTOSIS HAEMATOPHAGIC [None]
  - LYMPHOPROLIFERATIVE DISORDER [None]
